FAERS Safety Report 8221817-1 (Version None)
Quarter: 2012Q1

REPORT INFORMATION
  Report Type: 
  Country: None (occurrence: None)
  Receive Date: 20120320
  Receipt Date: 20120309
  Transmission Date: 20120608
  Serious: Yes (Hospitalization)
  Sender: FDA-Public Use
  Company Number: JP-PFIZER INC-2012070822

PATIENT
  Sex: Male

DRUGS (4)
  1. LANSOPRAZOLE [Suspect]
  2. WARFARIN SODIUM [Suspect]
  3. LIPITOR [Suspect]
     Route: 048
  4. PLAVIX [Suspect]

REACTIONS (1)
  - JAUNDICE [None]
